FAERS Safety Report 10482418 (Version 5)
Quarter: 2015Q3

REPORT INFORMATION
  Report Type: Spontaneous
  Country: US (occurrence: US)
  Receive Date: 20140929
  Receipt Date: 20150828
  Transmission Date: 20151125
  Serious: Yes (Hospitalization, Other)
  Sender: FDA-Public Use
  Company Number: US-BAYER-2014-143535

PATIENT
  Age: 20 Year
  Sex: Female
  Weight: 58.96 kg

DRUGS (2)
  1. MIRENA [Suspect]
     Active Substance: LEVONORGESTREL
     Indication: CONTRACEPTION
     Dosage: 20 MCG/24HR, CONT
     Route: 015
     Dates: start: 20090625, end: 20120524
  2. ADDERALL [Concomitant]
     Active Substance: AMPHETAMINE ASPARTATE\AMPHETAMINE SULFATE\DEXTROAMPHETAMINE SACCHARATE\DEXTROAMPHETAMINE SULFATE
     Indication: ATTENTION DEFICIT/HYPERACTIVITY DISORDER
     Dosage: UNK
     Dates: start: 2004

REACTIONS (12)
  - Scar [None]
  - Uterine scar [None]
  - Pregnancy with contraceptive device [None]
  - Device dislocation [None]
  - Device issue [None]
  - Abortion spontaneous [None]
  - Pain [None]
  - Injury [None]
  - Uterine perforation [None]
  - Off label use of device [None]
  - Drug ineffective [None]
  - Procedural complication [None]

NARRATIVE: CASE EVENT DATE: 201007
